FAERS Safety Report 8906460 (Version 1)
Quarter: 2012Q4

REPORT INFORMATION
  Report Type: 
  Country: US (occurrence: None)
  Receive Date: 20121112
  Receipt Date: 20121112
  Transmission Date: 20130627
  Serious: No
  Sender: FDA-Public Use
  Company Number: None

PATIENT
  Age: 66 Year
  Sex: Male

DRUGS (1)
  1. ZYCLARA [Suspect]

REACTIONS (11)
  - Lethargy [None]
  - Gait disturbance [None]
  - Myalgia [None]
  - Arthralgia [None]
  - Pain [None]
  - Musculoskeletal stiffness [None]
  - Asthenia [None]
  - Blood pressure systolic increased [None]
  - Heart rate irregular [None]
  - Thyroid disorder [None]
  - Arthritis [None]
